FAERS Safety Report 7789732-5 (Version None)
Quarter: 2011Q3

REPORT INFORMATION
  Report Type: 
  Country: None (occurrence: None)
  Receive Date: 20110930
  Receipt Date: 20101116
  Transmission Date: 20111222
  Serious: No
  Sender: FDA-Public Use
  Company Number: US-ASTRAZENECA-2008UW22379

PATIENT
  Age: 71 Year
  Sex: Female
  Weight: 81.6 kg

DRUGS (8)
  1. ARIMIDEX [Suspect]
     Indication: BREAST CANCER
     Route: 048
     Dates: start: 20080101
  2. JANUMET [Concomitant]
  3. SIMVASTATIN [Concomitant]
     Indication: BLOOD CHOLESTEROL INCREASED
  4. VITAMIN TAB [Concomitant]
  5. MAGOX [Concomitant]
  6. ASPIRIN [Concomitant]
  7. IRON [Concomitant]
  8. TOPROL-XL [Concomitant]
     Indication: HYPERTENSION

REACTIONS (4)
  - RASH MACULAR [None]
  - ARTHRALGIA [None]
  - ANAEMIA [None]
  - BODY HEIGHT DECREASED [None]
